FAERS Safety Report 9682825 (Version 1)
Quarter: 2013Q4

REPORT INFORMATION
  Report Type: Spontaneous
  Country: IT (occurrence: IT)
  Receive Date: 20131112
  Receipt Date: 20131112
  Transmission Date: 20140711
  Serious: Yes (Hospitalization)
  Sender: FDA-Public Use
  Company Number: PHHY2013IT127811

PATIENT
  Sex: Female

DRUGS (4)
  1. ZOLEDRONATE [Suspect]
     Indication: BREAST CANCER
     Dosage: 1 POSOLOGIC UNIT, CYCLIC
     Route: 042
     Dates: start: 20101101, end: 20110701
  2. FEMARA [Concomitant]
     Dates: start: 20101101, end: 20130301
  3. AROMASIN [Concomitant]
     Dates: start: 20100301, end: 20131106
  4. AFINITOR [Concomitant]
     Dates: start: 20100801, end: 20130901

REACTIONS (1)
  - Osteonecrosis of jaw [Not Recovered/Not Resolved]
